FAERS Safety Report 10926340 (Version 1)
Quarter: 2015Q1

REPORT INFORMATION
  Report Type: Spontaneous
  Country: US (occurrence: US)
  Receive Date: 20150318
  Receipt Date: 20150318
  Transmission Date: 20150721
  Serious: Yes (Other)
  Sender: FDA-Public Use
  Company Number: US-PFIZER INC-2015093883

PATIENT
  Sex: Female

DRUGS (1)
  1. VFEND [Suspect]
     Active Substance: VORICONAZOLE
     Indication: ASPERGILLUS INFECTION
     Dosage: 200 UNK, 2X/DAY
     Route: 042
     Dates: end: 20150312

REACTIONS (5)
  - Hallucination, auditory [Unknown]
  - Sleep talking [Unknown]
  - Vision blurred [Unknown]
  - Insomnia [Unknown]
  - Hallucination, visual [Unknown]
